FAERS Safety Report 5210401-X (Version None)
Quarter: 2007Q1

REPORT INFORMATION
  Report Type: 
  Country: None (occurrence: None)
  Receive Date: 20070117
  Receipt Date: 20070109
  Transmission Date: 20070707
  Serious: Yes (Hospitalization, Other)
  Sender: FDA-Public Use
  Company Number: US-BAYER-200615114BCC

PATIENT
  Age: 78 Year
  Sex: Male
  Weight: 68 kg

DRUGS (4)
  1. ASPIRIN TAB [Suspect]
     Indication: CARDIOVASCULAR EVENT PROPHYLAXIS
     Dosage: TOTAL DAILY DOSE: 81 MG  UNIT DOSE: 81 MG
     Route: 048
     Dates: start: 20020101, end: 20061227
  2. LIPITOR [Concomitant]
     Route: 048
  3. NORVASC [Concomitant]
     Route: 048
  4. TOPROL-XL [Concomitant]
     Route: 048
     Dates: start: 20061201

REACTIONS (3)
  - ARTERIAL STENOSIS [None]
  - HEART RATE INCREASED [None]
  - LEUKAEMIA [None]
